FAERS Safety Report 19144245 (Version 1)
Quarter: 2021Q2

REPORT INFORMATION
  Report Type: Spontaneous
  Country: AT (occurrence: AT)
  Receive Date: 20210416
  Receipt Date: 20210416
  Transmission Date: 20210717
  Serious: Yes (Other)
  Sender: FDA-Public Use
  Company Number: AT-AMGEN-AUTNI2021056900

PATIENT
  Age: 56 Year
  Sex: Female
  Weight: 52 kg

DRUGS (12)
  1. TRITTICO [Concomitant]
     Active Substance: TRAZODONE HYDROCHLORIDE
     Dosage: ONGOING = CHECKED
     Dates: start: 20190910
  2. CEOLAT [Concomitant]
     Dosage: ONGOING = CHECKED
  3. ONDANSAN [Concomitant]
     Active Substance: ONDANSETRON HYDROCHLORIDE
     Dosage: ONGOING = CHECKED
  4. NOVALGIN (METAMIZOLE SODIUM) [Concomitant]
     Active Substance: METAMIZOLE SODIUM
     Dosage: ONGOING = CHECKED
  5. PANTOLOC [PANTOPRAZOLE] [Concomitant]
     Active Substance: PANTOPRAZOLE SODIUM
     Dosage: ONGOING = CHECKED
  6. PERJETA [Suspect]
     Active Substance: PERTUZUMAB
     Indication: BREAST CANCER
     Dosage: FREQUENCY: Q3W ? EVERY 3 WEEKS MOST RECENT DOSE PRIOR TO THE EVENT: 20190318
     Route: 042
     Dates: start: 20190225, end: 20190317
  7. ESCITALOPRAM [Concomitant]
     Active Substance: ESCITALOPRAM OXALATE
     Dosage: ONGOING = CHECKED
     Dates: start: 20200317
  8. KANJINTI [Suspect]
     Active Substance: TRASTUZUMAB-ANNS
     Indication: BREAST CANCER
     Dosage: FREQUENCY: Q3W ? EVERY 3 WEEKS MOST RECENT DOSE PRIOR TO THE EVENT: 20190318
     Route: 042
     Dates: start: 20190225, end: 20190317
  9. ELIQUIS [Concomitant]
     Active Substance: APIXABAN
     Dosage: ONGOING = CHECKED
  10. NOMEXOR [Concomitant]
     Active Substance: NEBIVOLOL HYDROCHLORIDE
     Dosage: ONGOING = CHECKED
  11. ENTEROBENE [Concomitant]
     Dosage: ONGOING = CHECKED
     Dates: start: 20190729
  12. TAXOTERE [Suspect]
     Active Substance: DOCETAXEL
     Indication: BREAST CANCER
     Dosage: Q3W ? EVERY 3 WEEKS
     Route: 042
     Dates: start: 20190225, end: 20190520

REACTIONS (2)
  - Respiratory tract infection [Recovered/Resolved]
  - Off label use [Unknown]

NARRATIVE: CASE EVENT DATE: 20200317
